FAERS Safety Report 9027278 (Version 1)
Quarter: 2013Q1

REPORT INFORMATION
  Report Type: Spontaneous
  Country: US (occurrence: US)
  Receive Date: 20130123
  Receipt Date: 20130123
  Transmission Date: 20140127
  Serious: No
  Sender: FDA-Public Use
  Company Number: US-009507513-1301USA010885

PATIENT
  Sex: Male

DRUGS (1)
  1. LOTRIMIN AF [Suspect]
     Indication: TINEA CRURIS
     Dosage: UNK, UNKNOWN
     Route: 048

REACTIONS (1)
  - Drug ineffective [Unknown]
